FAERS Safety Report 9285556 (Version 1)
Quarter: 2013Q2

REPORT INFORMATION
  Report Type: Spontaneous
  Country: IN (occurrence: IN)
  Receive Date: 20130513
  Receipt Date: 20130513
  Transmission Date: 20140414
  Serious: Yes (Hospitalization)
  Sender: FDA-Public Use
  Company Number: IN-MYLANLABS-2013S1009707

PATIENT
  Age: 63 Year
  Sex: Male

DRUGS (3)
  1. WARFARIN [Suspect]
     Dosage: 4MG
     Route: 065
  2. TORASEMIDE [Concomitant]
     Dosage: 10MG
     Route: 065
  3. DILTIAZEM [Concomitant]
     Dosage: 60MG
     Route: 065

REACTIONS (2)
  - Colonic haematoma [Recovered/Resolved]
  - Intestinal obstruction [Recovered/Resolved]
